FAERS Safety Report 9346383 (Version 1)
Quarter: 2013Q2

REPORT INFORMATION
  Report Type: Spontaneous
  Country: FR (occurrence: FR)
  Receive Date: 20130613
  Receipt Date: 20130613
  Transmission Date: 20140414
  Serious: Yes (Other)
  Sender: FDA-Public Use
  Company Number: PHHY2013FR058604

PATIENT
  Age: 49 Year
  Sex: Female

DRUGS (2)
  1. ILARIS [Suspect]
     Indication: JUVENILE IDIOPATHIC ARTHRITIS
     Dosage: 150 MG, UNK
     Route: 058
  2. ILARIS [Suspect]
     Indication: OFF LABEL USE
     Dosage: 150 MG, UNK
     Route: 058

REACTIONS (18)
  - Histiocytosis haematophagic [Unknown]
  - Hepatocellular injury [Recovered/Resolved]
  - Renal failure [Recovering/Resolving]
  - Thrombocytopenia [Recovering/Resolving]
  - Leukocytosis [Unknown]
  - Neutrophil count increased [Unknown]
  - Hypertriglyceridaemia [Unknown]
  - Blood lactate dehydrogenase increased [Unknown]
  - Serum ferritin increased [Unknown]
  - Pyrexia [Unknown]
  - Hepatomegaly [Unknown]
  - Back pain [Unknown]
  - Macrophages increased [Unknown]
  - Abdominal pain [Recovered/Resolved]
  - Grand mal convulsion [Unknown]
  - Dyspnoea [Recovered/Resolved]
  - Tonsillitis [Unknown]
  - Odynophagia [Unknown]
